FAERS Safety Report 5406369-3 (Version None)
Quarter: 2007Q3

REPORT INFORMATION
  Report Type: 
  Country: None (occurrence: None)
  Receive Date: 20070713
  Receipt Date: 20070130
  Transmission Date: 20080115
  Serious: Yes (Hospitalization, Other)
  Sender: FDA-Public Use
  Company Number: US-JNJFOC-20060805143

PATIENT
  Age: 29 Year
  Sex: Female
  Weight: 73.8 kg

DRUGS (1)
  1. ORTHO EVRA [Suspect]
     Indication: DRUG USE FOR UNKNOWN INDICATION
     Dosage: 1 DOSE(S), 1 IN 1 WEEK, TRANSDERMAL)
     Route: 062
     Dates: start: 20041201, end: 20051001

REACTIONS (1)
  - CEREBROVASCULAR ACCIDENT [None]
